FAERS Safety Report 16983045 (Version 1)
Quarter: 2019Q4

REPORT INFORMATION
  Report Type: Spontaneous
  Country: JP (occurrence: JP)
  Receive Date: 20191101
  Receipt Date: 20191101
  Transmission Date: 20200122
  Serious: Yes (Hospitalization, Other)
  Sender: FDA-Public Use
  Company Number: JP-TEVA-2019-JP-1119640

PATIENT
  Age: 88 Year
  Sex: Male

DRUGS (2)
  1. MENESIT [Concomitant]
     Active Substance: CARBIDOPA\LEVODOPA
     Route: 065
  2. AZILECT [Suspect]
     Active Substance: RASAGILINE MESYLATE
     Indication: MULTIPLE SYSTEM ATROPHY
     Dosage: .5 MILLIGRAM DAILY;
     Route: 048
     Dates: end: 20191001

REACTIONS (4)
  - Multiple system atrophy [Unknown]
  - Disease progression [Unknown]
  - Orthostatic hypotension [Not Recovered/Not Resolved]
  - Off label use [Unknown]

NARRATIVE: CASE EVENT DATE: 20190924
